FAERS Safety Report 16972264 (Version 3)
Quarter: 2020Q1

REPORT INFORMATION
  Report Type: Spontaneous
  Country: US (occurrence: US)
  Receive Date: 20191029
  Receipt Date: 20200326
  Transmission Date: 20200409
  Serious: No
  Sender: FDA-Public Use
  Company Number: US-TEVA-2019-US-1130482

PATIENT
  Sex: Female

DRUGS (4)
  1. ATENOLOL TEVA [Suspect]
     Active Substance: ATENOLOL
     Indication: BLOOD PRESSURE MEASUREMENT
     Dosage: 50 MG, 1/2 TABLET IN THE MORNING AND 1 FULL TABLET IN THE EVENING
     Route: 048
     Dates: start: 2018
  2. ATENOLOL TEVA [Suspect]
     Active Substance: ATENOLOL
     Indication: MITRAL VALVE PROLAPSE
  3. ATENOLOL TEVA [Suspect]
     Active Substance: ATENOLOL
     Indication: PALPITATIONS
  4. ATENOLOL TEVA [Suspect]
     Active Substance: ATENOLOL
     Indication: ANXIETY

REACTIONS (6)
  - Feeling abnormal [Unknown]
  - Dyspepsia [Recovered/Resolved]
  - Arthralgia [Recovered/Resolved]
  - Pain [Recovered/Resolved]
  - Sluggishness [Recovered/Resolved]
  - Fatigue [Recovered/Resolved]
